FAERS Safety Report 5684975-9 (Version None)
Quarter: 2008Q1

REPORT INFORMATION
  Report Type: 
  Country: None (occurrence: None)
  Receive Date: 20080328
  Receipt Date: 20071010
  Transmission Date: 20080703
  Serious: No
  Sender: FDA-Public Use
  Company Number: US-BRISTOL-MYERS SQUIBB COMPANY-13936406

PATIENT
  Age: 60 Year
  Sex: Male
  Weight: 162 kg

DRUGS (15)
  1. ERBITUX [Suspect]
     Indication: COLORECTAL CANCER
     Dosage: STARTED 800 MG WEEKLY ON 10-JUL-2007
     Route: 042
     Dates: start: 20070710
  2. CAMPTOSAR [Concomitant]
  3. TYLOX [Concomitant]
  4. ZAROXOLYN [Concomitant]
  5. ALDACTONE [Concomitant]
  6. AMBIEN [Concomitant]
  7. LOVENOX [Concomitant]
  8. LEVAQUIN [Concomitant]
  9. DARVOCET [Concomitant]
  10. ANUSOL [Concomitant]
  11. IMODIUM [Concomitant]
  12. VANCOMYCIN [Concomitant]
  13. DECADRON [Concomitant]
     Route: 042
  14. BENADRYL [Concomitant]
     Route: 042
  15. ZOFRAN [Concomitant]
     Route: 042

REACTIONS (1)
  - DIARRHOEA [None]
